FAERS Safety Report 9215178 (Version 1)
Quarter: 2013Q2

REPORT INFORMATION
  Report Type: Spontaneous
  Country: US (occurrence: US)
  Receive Date: 20130405
  Receipt Date: 20130405
  Transmission Date: 20140414
  Serious: No
  Sender: FDA-Public Use
  Company Number: US-BAYER-2013-043065

PATIENT
  Age: 94 Year
  Sex: Female
  Weight: 68.93 kg

DRUGS (2)
  1. ALEVE TABLET [Suspect]
     Indication: ANALGESIC THERAPY
     Dosage: 2 DF, QD
     Route: 048
     Dates: start: 2011
  2. HIGH BLOOD PRESSURE PILL [Concomitant]

REACTIONS (1)
  - Incorrect drug administration duration [None]
